FAERS Safety Report 9972040 (Version 1)
Quarter: 2014Q1

REPORT INFORMATION
  Report Type: Spontaneous
  Country: US (occurrence: None)
  Receive Date: 20140305
  Receipt Date: 20140305
  Transmission Date: 20141002
  Serious: No
  Sender: FDA-Public Use
  Company Number: None

PATIENT
  Age: 41 Year
  Sex: Female
  Weight: 108.86 kg

DRUGS (1)
  1. PRISTIQ [Suspect]
     Indication: ANXIETY

REACTIONS (5)
  - Drug withdrawal syndrome [None]
  - Headache [None]
  - Paraesthesia [None]
  - Irritability [None]
  - Abdominal discomfort [None]
